FAERS Safety Report 4429340-7 (Version None)
Quarter: 2004Q3

REPORT INFORMATION
  Report Type: 
  Country: None (occurrence: None)
  Receive Date: 20040819
  Receipt Date: 20040728
  Transmission Date: 20050211
  Serious: Yes (Hospitalization)
  Sender: FDA-Public Use
  Company Number: DE-JNJFOC-20040800090

PATIENT
  Sex: Male

DRUGS (19)
  1. LEVOFLOXACIN [Suspect]
     Route: 042
     Dates: start: 20030124, end: 20030128
  2. LEVOFLOXACIN [Suspect]
     Route: 049
     Dates: start: 20030129, end: 20030207
  3. FLOMAX [Concomitant]
     Route: 049
  4. PRILOSEC [Concomitant]
     Route: 049
     Dates: start: 20010310, end: 20030223
  5. PRILOSEC [Concomitant]
     Route: 049
     Dates: start: 20010310, end: 20030223
  6. AMBIEN [Concomitant]
     Indication: INSOMNIA
     Route: 049
     Dates: start: 20030125, end: 20030130
  7. MULTI-VITAMIN [Concomitant]
     Route: 049
     Dates: start: 19930206, end: 20030216
  8. MULTI-VITAMIN [Concomitant]
     Route: 049
     Dates: start: 19930206, end: 20030216
  9. MULTI-VITAMIN [Concomitant]
     Route: 049
     Dates: start: 19930206, end: 20030216
  10. MULTI-VITAMIN [Concomitant]
     Route: 049
     Dates: start: 19930206, end: 20030216
  11. MULTI-VITAMIN [Concomitant]
     Route: 049
     Dates: start: 19930206, end: 20030216
  12. MULTI-VITAMIN [Concomitant]
     Route: 049
     Dates: start: 19930206, end: 20030216
  13. MULTI-VITAMIN [Concomitant]
     Route: 049
     Dates: start: 19930206, end: 20030216
  14. MULTI-VITAMIN [Concomitant]
     Route: 049
     Dates: start: 19930206, end: 20030216
  15. PROTONIX [Concomitant]
     Route: 049
     Dates: start: 20030125, end: 20030129
  16. DILANTIN [Concomitant]
     Dates: start: 19970914, end: 20030217
  17. K-DUR 10 [Concomitant]
  18. CORTROSYN [Concomitant]
     Dates: start: 20030202, end: 20030223
  19. FUROSEMIDE [Concomitant]

REACTIONS (5)
  - ACUTE PULMONARY OEDEMA [None]
  - GASTROOESOPHAGEAL REFLUX DISEASE [None]
  - MYOCARDIAL INFARCTION [None]
  - OESOPHAGEAL STENOSIS [None]
  - PERICARDIAL EFFUSION [None]
